FAERS Safety Report 9223453 (Version 1)
Quarter: 2013Q2

REPORT INFORMATION
  Report Type: Spontaneous
  Country: US (occurrence: US)
  Receive Date: 20130410
  Receipt Date: 20130410
  Transmission Date: 20140414
  Serious: No
  Sender: FDA-Public Use
  Company Number: US-009507513-1304USA004620

PATIENT
  Sex: Female
  Weight: 104.31 kg

DRUGS (2)
  1. MIRALAX [Suspect]
     Indication: CONSTIPATION
     Dosage: 25.5 G, QW
     Route: 048
     Dates: start: 201002
  2. MIRALAX [Suspect]
     Indication: MEDICAL OBSERVATION

REACTIONS (4)
  - Blood glucose abnormal [Not Recovered/Not Resolved]
  - Abdominal pain [Not Recovered/Not Resolved]
  - Abdominal distension [Not Recovered/Not Resolved]
  - Incorrect drug administration duration [Unknown]
